FAERS Safety Report 18361259 (Version 5)
Quarter: 2021Q3

REPORT INFORMATION
  Report Type: Spontaneous
  Country: IN (occurrence: IN)
  Receive Date: 20201008
  Receipt Date: 20210812
  Transmission Date: 20211014
  Serious: Yes (Other)
  Sender: FDA-Public Use
  Company Number: IN-PFIZER INC-2019105859

PATIENT
  Age: 45 Year
  Sex: Male
  Weight: 80.4 kg

DRUGS (2)
  1. CRIZALK [Suspect]
     Active Substance: CRIZOTINIB
     Dosage: 250 MG, 2X/DAY
     Route: 048
     Dates: start: 20170923, end: 20210530
  2. CRIZALK [Suspect]
     Active Substance: CRIZOTINIB
     Indication: LUNG CANCER METASTATIC
     Dosage: 250 MG, 2X/DAY
     Route: 048
     Dates: start: 20170919

REACTIONS (7)
  - Blood calcium decreased [Unknown]
  - COVID-19 [Unknown]
  - Weight decreased [Unknown]
  - Necrosis [Unknown]
  - Pleural effusion [Unknown]
  - Neoplasm progression [Unknown]
  - Vitamin D decreased [Unknown]

NARRATIVE: CASE EVENT DATE: 201804
